FAERS Safety Report 21594957 (Version 1)
Quarter: 2022Q4

REPORT INFORMATION
  Report Type: Spontaneous
  Country: FR (occurrence: FR)
  Receive Date: 20221115
  Receipt Date: 20221115
  Transmission Date: 20230113
  Serious: Yes (Hospitalization)
  Sender: FDA-Public Use
  Company Number: None

PATIENT
  Age: 63 Year
  Sex: Female
  Weight: 42 kg

DRUGS (10)
  1. ETOPOSIDE PHOSPHATE [Suspect]
     Active Substance: ETOPOSIDE PHOSPHATE
     Indication: Chemotherapy
     Dosage: PAR CURE
     Route: 042
     Dates: start: 20221007, end: 20221010
  2. RITUXIMAB [Suspect]
     Active Substance: RITUXIMAB
     Indication: Chemotherapy
     Route: 042
     Dates: start: 20221006, end: 20221006
  3. CYTARABINE [Suspect]
     Active Substance: CYTARABINE
     Indication: Chemotherapy
     Dosage: PAR CURE
     Route: 042
     Dates: start: 20221007, end: 20221011
  4. MELPHALAN [Suspect]
     Active Substance: MELPHALAN
     Indication: Chemotherapy
     Route: 042
     Dates: start: 20221011, end: 20221011
  5. SPIRIVA [Concomitant]
     Active Substance: TIOTROPIUM BROMIDE MONOHYDRATE
     Dosage: REPORTED AS: 2.5 UG/DOSE 2 DOSES IN THE MORNING
  6. ALLOPURINOL [Concomitant]
     Active Substance: ALLOPURINOL
     Dosage: 200MG IN THE EVENING?DAILY DOSE: 200 MILLIGRAM
  7. PANTOPRAZOLE [Concomitant]
     Active Substance: PANTOPRAZOLE
     Dosage: 40MG IN THE MORNING?DAILY DOSE: 40 MILLIGRAM
  8. BACTRIM [Concomitant]
     Active Substance: SULFAMETHOXAZOLE\TRIMETHOPRIM
     Dosage: 1CP 3 TIMES/WEEK
  9. ZELITREX 500mg [Concomitant]
     Dosage: 1CP MORNING AND EVENING
  10. LEDERFOLINE 25mg [Concomitant]
     Dosage: 1CP ON SUNDAY

REACTIONS (2)
  - Ventricular hypokinesia [Unknown]
  - Ejection fraction decreased [Unknown]

NARRATIVE: CASE EVENT DATE: 20221023
